FAERS Safety Report 8290426-0 (Version None)
Quarter: 2012Q2

REPORT INFORMATION
  Report Type: 
  Country: None (occurrence: None)
  Receive Date: 20120417
  Receipt Date: 20111220
  Transmission Date: 20120825
  Serious: No
  Sender: FDA-Public Use
  Company Number: US-ASTRAZENECA-2011SE77384

PATIENT
  Age: 64 Year
  Sex: Female

DRUGS (7)
  1. NEXIUM [Suspect]
     Route: 048
  2. PRENATAL MVI [Concomitant]
  3. FISH OIL [Concomitant]
  4. TYLENOL (CAPLET) [Concomitant]
     Indication: ARTHRITIS
  5. BLACK COHOSH [Concomitant]
  6. SPIRONOLACTONE [Concomitant]
  7. POTASSIUM [Concomitant]

REACTIONS (5)
  - GASTROOESOPHAGEAL REFLUX DISEASE [None]
  - BARRETT'S OESOPHAGUS [None]
  - OESOPHAGEAL DYSPLASIA [None]
  - DYSPEPSIA [None]
  - EROSIVE OESOPHAGITIS [None]
